FAERS Safety Report 23657994 (Version 1)
Quarter: 2024Q1

REPORT INFORMATION
  Report Type: Spontaneous
  Country: US (occurrence: US)
  Receive Date: 20240321
  Receipt Date: 20240321
  Transmission Date: 20240410
  Serious: No
  Sender: FDA-Public Use
  Company Number: US-PFIZER INC-202400057757

PATIENT
  Age: 48 Year
  Sex: Female

DRUGS (1)
  1. GENOTROPIN [Suspect]
     Active Substance: SOMATROPIN
     Dosage: 0.6 MG, DAILY (7 DAYS A WEEK)
     Dates: start: 202401

REACTIONS (7)
  - Device leakage [Unknown]
  - Drug dose omission by device [Unknown]
  - Device difficult to use [Unknown]
  - Intentional product use issue [Unknown]
  - Device issue [Unknown]
  - Nausea [Unknown]
  - Malaise [Unknown]

NARRATIVE: CASE EVENT DATE: 20240101
